FAERS Safety Report 12693887 (Version 1)
Quarter: 2016Q3

REPORT INFORMATION
  Report Type: Spontaneous
  Country: US (occurrence: US)
  Receive Date: 20160829
  Receipt Date: 20160829
  Transmission Date: 20161109
  Serious: No
  Sender: FDA-Public Use
  Company Number: US-PFIZER INC-2016399580

PATIENT
  Age: 57 Year
  Sex: Female
  Weight: 80.27 kg

DRUGS (3)
  1. EFFEXOR XR [Suspect]
     Active Substance: VENLAFAXINE HYDROCHLORIDE
     Dosage: 300 MG, UNK
     Route: 048
  2. EFFEXOR XR [Suspect]
     Active Substance: VENLAFAXINE HYDROCHLORIDE
     Indication: DEPRESSION
     Dosage: 300 MG, UNK
     Route: 048
  3. EFFEXOR XR [Suspect]
     Active Substance: VENLAFAXINE HYDROCHLORIDE
     Dosage: 225 MG (150 MG AND 75 MG), 1X/DAY
     Route: 048
     Dates: start: 201607

REACTIONS (3)
  - Agitation [Recovering/Resolving]
  - Intentional product use issue [Unknown]
  - Crying [Recovering/Resolving]

NARRATIVE: CASE EVENT DATE: 201607
